FAERS Safety Report 9301010 (Version 3)
Quarter: 2013Q4

REPORT INFORMATION
  Report Type: Spontaneous
  Country: US (occurrence: US)
  Receive Date: 20130521
  Receipt Date: 20131025
  Transmission Date: 20140711
  Serious: No
  Sender: FDA-Public Use
  Company Number: US-PFIZER INC-2013154452

PATIENT
  Age: 25 Year
  Sex: Male
  Weight: 99.8 kg

DRUGS (3)
  1. CHANTIX [Suspect]
     Indication: SMOKING CESSATION THERAPY
     Dosage: 1 MG, 2X/DAY
     Dates: end: 2013
  2. CHANTIX [Suspect]
     Dosage: UNK
     Dates: start: 201305
  3. TEGRETOL [Concomitant]
     Indication: BIPOLAR DISORDER
     Dosage: 200 MG, 2X/DAY

REACTIONS (1)
  - Erectile dysfunction [Not Recovered/Not Resolved]
